FAERS Safety Report 8439525-0 (Version None)
Quarter: 2012Q2

REPORT INFORMATION
  Report Type: 
  Country: None (occurrence: None)
  Receive Date: 20120615
  Receipt Date: 20120614
  Transmission Date: 20120825
  Serious: Yes (Death)
  Sender: FDA-Public Use
  Company Number: VE-PFIZER INC-2012116750

PATIENT
  Age: 77 Year
  Sex: Female

DRUGS (3)
  1. COZAAR [Concomitant]
     Dosage: 50 MG, UNK
     Route: 048
     Dates: start: 20080101
  2. LIPITOR [Suspect]
     Indication: HYPERCHOLESTEROLAEMIA
     Dosage: 40 MG, 1X/DAY
     Route: 048
     Dates: start: 20080101
  3. PLAVIX [Concomitant]
     Dosage: 75 MG, UNK
     Route: 048
     Dates: start: 20080101

REACTIONS (2)
  - RESPIRATORY ARREST [None]
  - DIZZINESS [None]
